FAERS Safety Report 21420339 (Version 1)
Quarter: 2022Q4

REPORT INFORMATION
  Report Type: Spontaneous
  Country: TR (occurrence: TR)
  Receive Date: 20221007
  Receipt Date: 20221007
  Transmission Date: 20230113
  Serious: Yes (Hospitalization, Other)
  Sender: FDA-Public Use
  Company Number: TR-AMGEN-TURSP2022166601

PATIENT
  Age: 32 Year
  Sex: Female

DRUGS (3)
  1. DARBEPOETIN ALFA [Suspect]
     Active Substance: DARBEPOETIN ALFA
     Indication: Myelodysplastic syndrome
     Dosage: 100 MICROGRAM, QWK
     Route: 065
  2. DARBEPOETIN ALFA [Suspect]
     Active Substance: DARBEPOETIN ALFA
     Dosage: 150 MICROGRAM, QWK
     Route: 065
  3. FILGRASTIM [Suspect]
     Active Substance: FILGRASTIM
     Indication: Neutrophil count decreased
     Dosage: 30 IU, QWK
     Route: 065

REACTIONS (5)
  - Cardiac failure [Recovering/Resolving]
  - Hepatomegaly [Unknown]
  - Intra-abdominal fluid collection [Unknown]
  - Anaemia megaloblastic [Unknown]
  - Off label use [Unknown]
